FAERS Safety Report 4997962-0 (Version None)
Quarter: 2006Q2

REPORT INFORMATION
  Report Type: 
  Country: None (occurrence: None)
  Receive Date: 20060508
  Receipt Date: 20060419
  Transmission Date: 20061013
  Serious: Yes (Other)
  Sender: FDA-Public Use
  Company Number: CHPA2006US03972

PATIENT
  Sex: Female

DRUGS (1)
  1. EXCEDRIN (MIGRAINE) [Suspect]
     Indication: MIGRAINE
     Dosage: 2 DF, DAILY ON MOST DAYS FOR 5 YEARS, ORAL
     Route: 048

REACTIONS (3)
  - CHEST PAIN [None]
  - DRUG ABUSER [None]
  - DRUG DEPENDENCE [None]
